FAERS Safety Report 5599268-8 (Version None)
Quarter: 2008Q1

REPORT INFORMATION
  Report Type: 
  Country: None (occurrence: None)
  Receive Date: 20080117
  Receipt Date: 20080104
  Transmission Date: 20080703
  Serious: Yes (Death)
  Sender: FDA-Public Use
  Company Number: SPV1-2007-05297

PATIENT
  Age: 16 Year
  Sex: Male
  Weight: 30 kg

DRUGS (1)
  1. ELAPRASE [Suspect]
     Indication: MUCOPOLYSACCHARIDOSIS II
     Dosage: 18 MG, 1X/WEEK, IV DRIP
     Route: 041
     Dates: start: 20061215, end: 20071230

REACTIONS (2)
  - BLOOD ELECTROLYTES ABNORMAL [None]
  - RESPIRATORY TRACT INFECTION [None]
